FAERS Safety Report 18093954 (Version 2)
Quarter: 2020Q3

REPORT INFORMATION
  Report Type: Spontaneous
  Country: US (occurrence: US)
  Receive Date: 20200730
  Receipt Date: 20200917
  Transmission Date: 20201103
  Serious: No
  Sender: FDA-Public Use
  Company Number: US-AMAG PHARMACEUTICALS, INC.-AMAG202002336

PATIENT
  Age: 32 Year
  Sex: Female
  Weight: 71.28 kg

DRUGS (1)
  1. MAKENA [Suspect]
     Active Substance: HYDROXYPROGESTERONE CAPROATE
     Indication: PREMATURE DELIVERY
     Dosage: 250MG/ML, WEEKLY
     Route: 058
     Dates: start: 20200603

REACTIONS (6)
  - Injection site pruritus [Unknown]
  - Injection site mass [Unknown]
  - Injection site discomfort [Unknown]
  - Injection site erythema [Unknown]
  - Inappropriate schedule of product administration [Unknown]
  - Injection site rash [Unknown]

NARRATIVE: CASE EVENT DATE: 20200603
